FAERS Safety Report 23741105 (Version 1)
Quarter: 2024Q2

REPORT INFORMATION
  Report Type: Report from Study
  Country: CA (occurrence: CA)
  Receive Date: 20240415
  Receipt Date: 20240415
  Transmission Date: 20240716
  Serious: Yes (Hospitalization, Other)
  Sender: FDA-Public Use
  Company Number: CA-BAYER-2024A052538

PATIENT
  Sex: Male

DRUGS (2)
  1. EYLEA [Suspect]
     Active Substance: AFLIBERCEPT
     Indication: Diabetic retinal oedema
     Dosage: UNK, 40MG/ML
     Route: 031
  2. 20/20 EYE DROP [Concomitant]
     Indication: Product used for unknown indication
     Dosage: LEFT EYE 4 TIMES A DAY.
     Route: 031

REACTIONS (1)
  - Eye infection [Unknown]
